FAERS Safety Report 4539010-2 (Version None)
Quarter: 2004Q4

REPORT INFORMATION
  Report Type: 
  Country: None (occurrence: None)
  Receive Date: 20041222
  Receipt Date: 20041208
  Transmission Date: 20050328
  Serious: Yes (Death, Other)
  Sender: FDA-Public Use
  Company Number: USA030742100

PATIENT
  Age: 92 Year
  Sex: Female

DRUGS (1)
  1. FORTEO [Suspect]
     Indication: OSTEOPOROSIS
     Dates: start: 20030701, end: 20030801

REACTIONS (9)
  - ABASIA [None]
  - ACUTE MYOCARDIAL INFARCTION [None]
  - BLOOD CREATINE INCREASED [None]
  - CARDIAC FAILURE CONGESTIVE [None]
  - CONDITION AGGRAVATED [None]
  - CREATININE URINE INCREASED [None]
  - FRACTURE [None]
  - INJECTION SITE PAIN [None]
  - PAIN [None]
